FAERS Safety Report 5351449-4 (Version None)
Quarter: 2007Q2

REPORT INFORMATION
  Report Type: 
  Country: None (occurrence: None)
  Receive Date: 20070521
  Receipt Date: 20070202
  Transmission Date: 20071010
  Serious: No
  Sender: FDA-Public Use
  Company Number: WAES 0612USA03837

PATIENT
  Age: 65 Year
  Sex: Female

DRUGS (8)
  1. JANUVIA [Suspect]
     Indication: DIABETES MELLITUS NON-INSULIN-DEPENDENT
     Dosage: 100 MG/DAILY/PO
     Route: 048
     Dates: start: 20061115, end: 20061204
  2. JANUVIA [Suspect]
     Indication: DIABETES MELLITUS NON-INSULIN-DEPENDENT
     Dosage: 100 MG/DAILY/PO
     Route: 048
     Dates: start: 20061215, end: 20061218
  3. NORVASC [Concomitant]
  4. PRANDIN [Concomitant]
  5. PRECOSE [Concomitant]
  6. TOPROL-XL [Concomitant]
  7. METFORMIN [Concomitant]
  8. SIMVASTATIN [Concomitant]

REACTIONS (1)
  - ANGIOEDEMA [None]
